FAERS Safety Report 7433889-2 (Version None)
Quarter: 2011Q2

REPORT INFORMATION
  Report Type: 
  Country: None (occurrence: None)
  Receive Date: 20110420
  Receipt Date: 20110420
  Transmission Date: 20111010
  Serious: Yes (Hospitalization)
  Sender: FDA-Public Use
  Company Number: None

PATIENT
  Age: 51 Year
  Sex: Male
  Weight: 86.1834 kg

DRUGS (2)
  1. PEGASYS [Suspect]
     Indication: HEPATITIS C
     Dosage: 180MCG -0.5ML- WEEKLY SQ
     Route: 058
     Dates: start: 20110103, end: 20110321
  2. RIBASPHERE [Suspect]
     Indication: HEPATITIS C
     Dosage: 600MG TWICE DAILY PO
     Route: 048
     Dates: start: 20110103, end: 20110321

REACTIONS (2)
  - WHITE BLOOD CELL COUNT DECREASED [None]
  - RED BLOOD CELL COUNT DECREASED [None]
